FAERS Safety Report 6504332-2 (Version None)
Quarter: 2009Q4

REPORT INFORMATION
  Report Type: 
  Country: None (occurrence: None)
  Receive Date: 20091217
  Receipt Date: 20091210
  Transmission Date: 20100525
  Serious: Yes (Other)
  Sender: FDA-Public Use
  Company Number: US-WATSON-2009-10591

PATIENT
  Age: 29 Year
  Sex: Male
  Weight: 68 kg

DRUGS (6)
  1. FENTANYL-25 [Suspect]
     Indication: MUSCULOSKELETAL PAIN
     Dosage: 1 PATCH, SINGLE AT NIGHT
     Route: 062
     Dates: start: 20091118, end: 20091118
  2. TRILEPTAL [Concomitant]
     Indication: BIPOLAR DISORDER
     Dosage: 600 MG QAM, 900 MG QPM
     Route: 048
     Dates: start: 20080101
  3. TRILEPTAL [Concomitant]
     Indication: POST-TRAUMATIC STRESS DISORDER
  4. TRILEPTAL [Concomitant]
     Indication: SCHIZOPHRENIA
  5. ZOLOFT [Concomitant]
     Indication: BIPOLAR DISORDER
     Dosage: 50 MG QAM, 100 MG QPM
     Route: 048
     Dates: start: 20080101
  6. ZYPREXA [Concomitant]
     Indication: BIPOLAR DISORDER
     Dosage: 10 MG, QPM
     Route: 048
     Dates: start: 20080101

REACTIONS (9)
  - CHILLS [None]
  - DYSARTHRIA [None]
  - DYSPNOEA [None]
  - FALL [None]
  - FATIGUE [None]
  - FEELING COLD [None]
  - INCOHERENT [None]
  - MEMORY IMPAIRMENT [None]
  - RESPIRATORY ARREST [None]
